FAERS Safety Report 18187160 (Version 1)
Quarter: 2020Q3

REPORT INFORMATION
  Report Type: Spontaneous
  Country: ME (occurrence: ME)
  Receive Date: 20200824
  Receipt Date: 20200824
  Transmission Date: 20201103
  Serious: Yes (Other)
  Sender: FDA-Public Use
  Company Number: ME-SUN PHARMACEUTICAL INDUSTRIES LTD-2020RR-257871

PATIENT
  Age: 52 Year
  Sex: Male

DRUGS (5)
  1. METHYLPREDNISOLONE. [Suspect]
     Active Substance: METHYLPREDNISOLONE
     Indication: COVID-19 PNEUMONIA
     Dosage: 60?80 MG DAILY (THROUGHOUT THE ICU TREATMENT)
     Route: 065
  2. CEFTRIAXONE. [Suspect]
     Active Substance: CEFTRIAXONE
     Indication: COVID-19 PNEUMONIA
     Dosage: (THROUGHOUT THE ENTIRE TREATMENT)
     Route: 065
  3. AZITHROMYCIN ANHYDROUS. [Suspect]
     Active Substance: AZITHROMYCIN ANHYDROUS
     Indication: COVID-19 PNEUMONIA
     Dosage: (THROUGHOUT THE ENTIRE TREATMENT)
     Route: 065
  4. CHLOROQUINE. [Suspect]
     Active Substance: CHLOROQUINE
     Indication: COVID-19 PNEUMONIA
     Dosage: 500 MILLIGRAM, BID (FOR THE FIRST 12 DAYS BEFORE ICU)
     Route: 065
  5. LOPINAVIR/RITONAVIR [Suspect]
     Active Substance: LOPINAVIR\RITONAVIR
     Indication: COVID-19 PNEUMONIA
     Dosage: 400/100 MG TWICE DAILY (FOR THE FIRST 12 DAYS AND 3 DAYS IN ICU)
     Route: 065

REACTIONS (2)
  - Off label use [Unknown]
  - Liver injury [Unknown]
